FAERS Safety Report 19941706 (Version 1)
Quarter: 2021Q4

REPORT INFORMATION
  Report Type: Spontaneous
  Country: US (occurrence: US)
  Receive Date: 20211007
  Receipt Date: 20211007
  Transmission Date: 20220303
  Serious: No
  Sender: FDA-Public Use
  Company Number: None

PATIENT
  Age: 67 Year
  Sex: Male
  Weight: 78 kg

DRUGS (1)
  1. SODIUM FERRIC GLUCONATE COMPLEX [Suspect]
     Active Substance: SODIUM FERRIC GLUCONATE COMPLEX
     Indication: Anaemia
     Route: 042
     Dates: start: 20210624, end: 20210624

REACTIONS (7)
  - Restlessness [None]
  - Mental status changes [None]
  - Hyperhidrosis [None]
  - Hypotension [None]
  - Agitation [None]
  - Confusional state [None]
  - Anaphylactic reaction [None]

NARRATIVE: CASE EVENT DATE: 20210624
